FAERS Safety Report 17236533 (Version 3)
Quarter: 2023Q2

REPORT INFORMATION
  Report Type: Report from Study
  Country: GB (occurrence: GB)
  Receive Date: 20200106
  Receipt Date: 20230523
  Transmission Date: 20230721
  Serious: Yes (Other)
  Sender: FDA-Public Use
  Company Number: GB-NOVARTISPH-NVSC2019GB084150

PATIENT
  Sex: Male

DRUGS (1)
  1. HYRIMOZ [Suspect]
     Active Substance: ADALIMUMAB-ADAZ
     Indication: Psoriasis
     Dosage: 40 MG (EOW)
     Route: 058

REACTIONS (7)
  - Thrombosis [Not Recovered/Not Resolved]
  - Brain cancer metastatic [Not Recovered/Not Resolved]
  - Skin hypertrophy [Not Recovered/Not Resolved]
  - Peripheral swelling [Not Recovered/Not Resolved]
  - Ulcer [Not Recovered/Not Resolved]
  - Pruritus [Not Recovered/Not Resolved]
  - Erythema [Not Recovered/Not Resolved]
